FAERS Safety Report 20699076 (Version 2)
Quarter: 2022Q3

REPORT INFORMATION
  Report Type: Spontaneous
  Country: US (occurrence: US)
  Receive Date: 20220412
  Receipt Date: 20220719
  Transmission Date: 20221027
  Serious: Yes (Other)
  Sender: FDA-Public Use
  Company Number: US-ELI_LILLY_AND_COMPANY-US202204004825

PATIENT
  Sex: Male

DRUGS (1)
  1. TRULICITY [Suspect]
     Active Substance: DULAGLUTIDE
     Indication: Product used for unknown indication
     Dosage: 0.75 MG, UNKNOWN
     Route: 065

REACTIONS (6)
  - Chronic lymphocytic leukaemia [Unknown]
  - Pancreatic disorder [Unknown]
  - Swelling [Unknown]
  - Neck mass [Unknown]
  - Hypoaesthesia [Unknown]
  - Pain [Unknown]
